FAERS Safety Report 14527630 (Version 2)
Quarter: 2018Q1

REPORT INFORMATION
  Report Type: Report from Study
  Country: FR (occurrence: FR)
  Receive Date: 20180213
  Receipt Date: 20180305
  Transmission Date: 20180509
  Serious: Yes (Hospitalization, Disabling)
  Sender: FDA-Public Use
  Company Number: FR-ASTRAZENECA-2018SE01770-IND

PATIENT
  Age: 67 Year
  Sex: Female
  Weight: 47 kg

DRUGS (12)
  1. OPTICRON [Concomitant]
     Active Substance: CROMOLYN SODIUM
     Indication: RHINITIS ALLERGIC
     Dosage: AS REQUIRED
     Route: 031
     Dates: start: 2011
  2. ZOLPIDEM [Concomitant]
     Active Substance: ZOLPIDEM\ZOLPIDEM TARTRATE
     Indication: INSOMNIA
     Dosage: PRN AS NEEDED
     Route: 048
     Dates: start: 20171009
  3. EBASTINE [Concomitant]
     Active Substance: EBASTINE
     Indication: MULTIPLE ALLERGIES
     Route: 048
     Dates: start: 2011
  4. CALTRATE [Concomitant]
     Active Substance: CALCIUM CARBONATE
     Indication: OSTEOPOROSIS
     Dosage: PRN AS NEEDED
     Route: 048
     Dates: start: 201412
  5. ESOMEPRAZOLE [Concomitant]
     Active Substance: ESOMEPRAZOLE
     Indication: GASTROOESOPHAGEAL REFLUX DISEASE
     Route: 048
  6. TRALOKINUMAB. [Suspect]
     Active Substance: TRALOKINUMAB
     Indication: DERMATITIS ATOPIC
     Dosage: 4ML AT DAY 0, 2ML EVERY 2 WEEKS (300 MG,1 IN 2 WK)
     Route: 058
     Dates: start: 20171023, end: 20171218
  7. PROLIA [Concomitant]
     Active Substance: DENOSUMAB
     Indication: OSTEOPOROSIS
     Dosage: PRN AS NEEDED
     Route: 058
     Dates: start: 2015
  8. SEROPLEX [Concomitant]
     Active Substance: ESCITALOPRAM OXALATE
     Indication: MULTIPLE ALLERGIES
     Dosage: PRN AS NEEDED
     Route: 048
     Dates: start: 2008
  9. SPIRIVA RESPIMAT [Concomitant]
     Active Substance: TIOTROPIUM BROMIDE
     Indication: ASTHMA
     Dosage: PRN AS NEEDED
     Route: 048
     Dates: start: 2012
  10. SERETIDE [Concomitant]
     Active Substance: FLUTICASONE PROPIONATE\SALMETEROL XINAFOATE
     Indication: ASTHMA
     Route: 048
     Dates: start: 2007
  11. UVEDOSE [Concomitant]
     Active Substance: CHOLECALCIFEROL
     Indication: OSTEOPOROSIS
     Route: 048
     Dates: start: 2014
  12. NASONEX [Concomitant]
     Active Substance: MOMETASONE FUROATE
     Indication: RHINITIS ALLERGIC
     Dosage: PRN AS NEEDED
     Route: 045
     Dates: start: 2011

REACTIONS (1)
  - Hyperhidrosis [Recovered/Resolved]

NARRATIVE: CASE EVENT DATE: 20180102
